FAERS Safety Report 23494154 (Version 3)
Quarter: 2024Q2

REPORT INFORMATION
  Report Type: Spontaneous
  Country: BR (occurrence: BR)
  Receive Date: 20240207
  Receipt Date: 20240522
  Transmission Date: 20240716
  Serious: Yes (Hospitalization, Other)
  Sender: FDA-Public Use
  Company Number: BR-002147023-NVSC2024BR024700

PATIENT
  Age: 79 Year
  Sex: Female
  Weight: 48 kg

DRUGS (10)
  1. EXELON PATCH [Suspect]
     Active Substance: RIVASTIGMINE
     Indication: Dementia with Lewy bodies
     Dosage: UNK, QD (ONE 10CM TRANSDERMAL PATCH)
     Route: 065
     Dates: start: 20231026
  2. CANNABIDIOL [Concomitant]
     Active Substance: CANNABIDIOL
     Indication: Product used for unknown indication
     Dosage: 0.5 ML, BID (IN THE MORNING AND AT NIGHT)
     Route: 065
     Dates: start: 202207
  3. MEMANTINE HYDROCHLORIDE [Concomitant]
     Active Substance: MEMANTINE HYDROCHLORIDE
     Indication: Product used for unknown indication
     Dosage: (1 TABLET AFTER COFFEE - MEDICATION SHE HAS BEEN TAKING FOR SEVERAL YEARS)
     Route: 065
  4. VENLAFAXINE HYDROCHLORIDE [Concomitant]
     Active Substance: VENLAFAXINE HYDROCHLORIDE
     Indication: Product used for unknown indication
     Dosage: (1 TABLET AFTER COFFEE - MEDICATION SHE HAS BEEN TAKING FOR SEVERAL YEARS)
     Route: 065
  5. ENOXAPARIN [Concomitant]
     Active Substance: ENOXAPARIN
     Indication: Product used for unknown indication
     Dosage: UNK
     Route: 065
  6. ESOMEPRAZOLE [Concomitant]
     Active Substance: ESOMEPRAZOLE
     Indication: Product used for unknown indication
     Dosage: UNK
     Route: 065
  7. LAMOTRIGINE [Concomitant]
     Active Substance: LAMOTRIGINE
     Indication: Product used for unknown indication
     Dosage: 25 MG
     Route: 065
  8. NYSTATIN [Concomitant]
     Active Substance: NYSTATIN
     Indication: Product used for unknown indication
     Dosage: UNK (IN THE DIAPER AREA)
     Route: 061
  9. MODAFINIL [Concomitant]
     Active Substance: MODAFINIL
     Indication: Product used for unknown indication
     Dosage: 1 TABLET AFTER COFFEE MEDICATION  SHE HAS BEEN TAKING FOR SEVERAL YEARS
     Route: 065
  10. VANCOMYCIN [Concomitant]
     Active Substance: VANCOMYCIN
     Indication: Product used for unknown indication
     Dosage: UNK
     Route: 065

REACTIONS (22)
  - Pyrexia [Unknown]
  - Serotonin syndrome [Unknown]
  - Hypotonia [Unknown]
  - Motor dysfunction [Unknown]
  - Musculoskeletal stiffness [Unknown]
  - Feeding tube user [Unknown]
  - Hypertonia [Unknown]
  - Hyperexplexia [Unknown]
  - Mental status changes [Unknown]
  - Gait disturbance [Unknown]
  - Dyskinesia [Unknown]
  - Tremor [Unknown]
  - Bradykinesia [Unknown]
  - Urinary tract infection [Unknown]
  - Seizure [Unknown]
  - Infection [Unknown]
  - Product use in unapproved indication [Unknown]
  - Endocarditis [Unknown]
  - SARS-CoV-2 antibody test positive [Unknown]
  - Pulmonary embolism [Unknown]
  - Confusional state [Unknown]
  - Phlebitis [Unknown]

NARRATIVE: CASE EVENT DATE: 20231101
